FAERS Safety Report 15133191 (Version 9)
Quarter: 2019Q3

REPORT INFORMATION
  Report Type: Spontaneous
  Country: DE (occurrence: DE)
  Receive Date: 20180712
  Receipt Date: 20190715
  Transmission Date: 20191004
  Serious: Yes (Hospitalization, Other)
  Sender: FDA-Public Use
  Company Number: DE-AUROBINDO-AUR-APL-2018-031337

PATIENT
  Age: 48 Year
  Sex: Male
  Weight: 76 kg

DRUGS (22)
  1. FLUOROURACIL. [Suspect]
     Active Substance: FLUOROURACIL
     Dosage: 4750 MILLIGRAM
     Route: 042
     Dates: start: 20190226, end: 20190312
  2. FOLINIC ACID [Suspect]
     Active Substance: LEUCOVORIN
     Indication: COLORECTAL CANCER METASTATIC
     Dosage: 780 MILLIGRAM
     Route: 065
     Dates: start: 20180516, end: 20181106
  3. PANITUMUMAB [Suspect]
     Active Substance: PANITUMUMAB
     Dosage: 6 MILLIGRAM
     Route: 042
     Dates: start: 20190326
  4. FERROSANOL [Concomitant]
     Active Substance: FERROUS GLUCONATE
     Indication: ANAEMIA
     Dosage: 80 MG, TID TO 100 MG, QD
     Route: 048
     Dates: start: 20180514, end: 20181030
  5. PLIAZON [Concomitant]
     Indication: PROPHYLAXIS
     Dosage: UNK, AS NECESSARY
     Route: 061
     Dates: start: 20180516
  6. FLUOROURACIL. [Suspect]
     Active Substance: FLUOROURACIL
     Dosage: 400 MILLIGRAM
     Route: 040
     Dates: start: 20190326
  7. FOLINIC ACID [Suspect]
     Active Substance: LEUCOVORIN
     Dosage: 400 MILLIGRAM
     Route: 065
     Dates: start: 20190326
  8. OXALIPLATIN. [Suspect]
     Active Substance: OXALIPLATIN
     Indication: COLORECTAL CANCER METASTATIC
     Dosage: 165 MILLIGRAM
     Route: 065
     Dates: start: 20180516, end: 20180814
  9. OXALIPLATIN. [Suspect]
     Active Substance: OXALIPLATIN
     Dosage: 85 MILLIGRAM
     Route: 065
     Dates: start: 20190326
  10. OXALIPLATIN. [Suspect]
     Active Substance: OXALIPLATIN
     Dosage: 135 MILLIGRAM
     Route: 065
     Dates: start: 20190226, end: 20190312
  11. PANITUMUMAB [Suspect]
     Active Substance: PANITUMUMAB
     Indication: COLORECTAL CANCER METASTATIC
     Dosage: 460 MILLIGRAM
     Route: 042
     Dates: start: 20180516
  12. PANITUMUMAB [Suspect]
     Active Substance: PANITUMUMAB
     Dosage: 480 MILLIGRAM
     Route: 042
     Dates: start: 20190226
  13. MONO EMBOLEX [Concomitant]
     Active Substance: CERTOPARIN SODIUM
     Indication: PROPHYLAXIS
     Dosage: 3000 INTERNATIONAL UNIT, ONCE A DAY
     Route: 058
     Dates: start: 20180516
  14. GLANDOMED [Concomitant]
     Indication: PROPHYLAXIS
     Dosage: 40 MILLILITER, ONCE A DAY, 20 ML, BID
     Route: 048
     Dates: start: 20180516
  15. FOLINIC ACID [Suspect]
     Active Substance: LEUCOVORIN
     Dosage: 780 MILLIGRAM
     Route: 065
     Dates: start: 20180516, end: 20190312
  16. FLUOROURACIL. [Suspect]
     Active Substance: FLUOROURACIL
     Indication: COLORECTAL CANCER METASTATIC
     Dosage: 800 MILLIGRAM
     Route: 040
     Dates: start: 20180516, end: 20190312
  17. FLUOROURACIL. [Suspect]
     Active Substance: FLUOROURACIL
     Dosage: 4650 MILLIGRAM
     Route: 042
     Dates: start: 20180516, end: 20181106
  18. FLUOROURACIL. [Suspect]
     Active Substance: FLUOROURACIL
     Dosage: 2400 MILLIGRAM
     Route: 042
     Dates: start: 20190326
  19. DOXY M [Concomitant]
     Indication: PROPHYLAXIS
     Dosage: 100 MILLIGRAM, ONCE A DAY
     Route: 048
     Dates: start: 20180516, end: 20181017
  20. MONO EMBOLEX [Concomitant]
     Active Substance: CERTOPARIN SODIUM
     Dosage: 3000 INTERNATIONAL UNIT, ONCE A DAY
     Route: 058
     Dates: start: 20180412, end: 20180518
  21. MACROGOL [Concomitant]
     Active Substance: POLYETHYLENE GLYCOLS
     Indication: PROPHYLAXIS
     Dosage: 60 MILLILITER, ONCE A DAY, 20 ML, TID
     Route: 048
     Dates: start: 20180516
  22. VITAMIN K [Concomitant]
     Active Substance: PHYTONADIONE
     Indication: PROPHYLAXIS
     Dosage: UNK
     Route: 061
     Dates: start: 20180516, end: 20181029

REACTIONS (9)
  - Hypocalcaemia [Unknown]
  - Mucosal inflammation [Not Recovered/Not Resolved]
  - Hypertension [Recovered/Resolved]
  - Fatigue [Not Recovered/Not Resolved]
  - Epistaxis [Not Recovered/Not Resolved]
  - Dermatitis acneiform [Not Recovered/Not Resolved]
  - Constipation [Not Recovered/Not Resolved]
  - Lymphocyte count decreased [Recovered/Resolved]
  - Infection [Recovered/Resolved]

NARRATIVE: CASE EVENT DATE: 20180517
